FAERS Safety Report 7341291-7 (Version None)
Quarter: 2011Q1

REPORT INFORMATION
  Report Type: 
  Country: None (occurrence: None)
  Receive Date: 20110309
  Receipt Date: 20110304
  Transmission Date: 20110831
  Serious: Yes (Life-Threatening, Hospitalization)
  Sender: FDA-Public Use
  Company Number: PHHY2011JP04540

PATIENT
  Age: 73 Year
  Sex: Male

DRUGS (2)
  1. DIOVAN [Suspect]
     Indication: HYPERTENSION
     Dosage: UNK
     Route: 048
     Dates: end: 20110117
  2. TEGRETOL [Suspect]
     Indication: EPILEPSY
     Dosage: 200 MG, UNK
     Route: 048
     Dates: start: 20101021, end: 20110117

REACTIONS (5)
  - INTERSTITIAL LUNG DISEASE [None]
  - RASH GENERALISED [None]
  - PYREXIA [None]
  - DYSPNOEA [None]
  - DRUG ERUPTION [None]
